FAERS Safety Report 10753849 (Version 1)
Quarter: 2015Q1

REPORT INFORMATION
  Report Type: Report from Study
  Country: CN (occurrence: CN)
  Receive Date: 20150202
  Receipt Date: 20150202
  Transmission Date: 20150721
  Serious: Yes (Other)
  Sender: FDA-Public Use
  Company Number: CN-ROCHE-1527788

PATIENT
  Age: 41 Year
  Sex: Male
  Weight: 68 kg

DRUGS (2)
  1. PEGINTERFERON ALFA-2A [Suspect]
     Active Substance: PEGINTERFERON ALFA-2A
     Indication: CHRONIC HEPATITIS B
     Dosage: LAST DOSE PRIOR TO SAE: 09/DEC/2014
     Route: 050
     Dates: start: 20140325, end: 20141214
  2. ENTECAVIR. [Suspect]
     Active Substance: ENTECAVIR
     Indication: CHRONIC HEPATITIS B
     Dosage: LAST DOSE PRIOR TO SAE: 13/DEC/2014.
     Route: 048
     Dates: start: 20130926, end: 20141214

REACTIONS (1)
  - Intervertebral disc protrusion [Not Recovered/Not Resolved]

NARRATIVE: CASE EVENT DATE: 20141214
